FAERS Safety Report 10154019 (Version 5)
Quarter: 2014Q3

REPORT INFORMATION
  Report Type: Spontaneous
  Country: JP (occurrence: JP)
  Receive Date: 20140506
  Receipt Date: 20140728
  Transmission Date: 20150326
  Serious: Yes (Other)
  Sender: FDA-Public Use
  Company Number: JP-ROCHE-1395296

PATIENT
  Sex: Female

DRUGS (4)
  1. CARBAZOCHROME SODIUM SULFONATE [Concomitant]
     Active Substance: CARBAZOCHROME SODIUM SULFONATE
  2. LUCENTIS [Suspect]
     Active Substance: RANIBIZUMAB
     Indication: RETINAL VEIN OCCLUSION
     Route: 050
  3. JUVELA [Concomitant]
     Active Substance: .ALPHA.-TOCOPHEROL\RETINOL
  4. LUCENTIS [Suspect]
     Active Substance: RANIBIZUMAB
     Indication: MACULAR OEDEMA
     Dosage: RIGHT EYE
     Route: 050
     Dates: start: 20140228, end: 20140228

REACTIONS (7)
  - Iritis [Recovered/Resolved]
  - Uveitis [Recovered/Resolved]
  - Vitreous opacities [Recovering/Resolving]
  - Vision blurred [Recovering/Resolving]
  - Macular oedema [Recovering/Resolving]
  - Endophthalmitis [Recovered/Resolved]
  - Ocular hypertension [Unknown]
